FAERS Safety Report 8557835 (Version 2)
Quarter: 2012Q4

REPORT INFORMATION
  Report Type: Report from Study
  Country: FR (occurrence: FR)
  Receive Date: 20120511
  Receipt Date: 20120910
  Transmission Date: 20130627
  Serious: Yes (Hospitalization)
  Sender: FDA-Public Use
  Company Number: FR-EISAI INC-E7389-02409-CLI-FR

PATIENT
  Age: 61 Year
  Sex: Male
  Weight: 60 kg

DRUGS (1)
  1. E7389 (BOLD) [Suspect]
     Indication: LUNG CANCER
     Route: 041
     Dates: start: 20120126

REACTIONS (1)
  - Cerebrovascular accident [Recovered/Resolved]
